FAERS Safety Report 4994433-2 (Version None)
Quarter: 2006Q2

REPORT INFORMATION
  Report Type: 
  Country: None (occurrence: None)
  Receive Date: 20060503
  Receipt Date: 20060421
  Transmission Date: 20061013
  Serious: Yes (Hospitalization)
  Sender: FDA-Public Use
  Company Number: 2006045667

PATIENT
  Age: 57 Year
  Sex: Female
  Weight: 53 kg

DRUGS (4)
  1. LIPITOR [Suspect]
     Indication: HYPERCHOLESTEROLAEMIA
     Dosage: 10 MG (10 MG, 1 IN 1 D), ORAL
     Route: 048
     Dates: start: 20060218, end: 20060310
  2. PROHEPARUM (CHOLINE BITARTRATE, CYANOCOBALAMIN, CYSTEINE, INOSITOL, LI [Concomitant]
  3. LIVER EXTRACT (LIVER EXTRACT) [Concomitant]
  4. GLYCYRON (AMINOACETIC ACID, DL-METHIONINE, GLYCYRRHIZIC ACID) [Concomitant]

REACTIONS (5)
  - ALANINE AMINOTRANSFERASE INCREASED [None]
  - ASPARTATE AMINOTRANSFERASE INCREASED [None]
  - ASTHENIA [None]
  - HEPATIC FUNCTION ABNORMAL [None]
  - MALAISE [None]
